FAERS Safety Report 14689626 (Version 1)
Quarter: 2018Q1

REPORT INFORMATION
  Report Type: Spontaneous
  Country: CN (occurrence: CN)
  Receive Date: 20180328
  Receipt Date: 20180328
  Transmission Date: 20180509
  Serious: Yes (Other)
  Sender: FDA-Public Use
  Company Number: CN-ELI_LILLY_AND_COMPANY-CN201803008182

PATIENT
  Age: 38 Year
  Sex: Female
  Weight: 56 kg

DRUGS (3)
  1. ZYPREXA [Suspect]
     Active Substance: OLANZAPINE
     Indication: SCHIZOPHRENIA
     Dosage: 3 DF, DAILY
     Route: 048
     Dates: start: 2012
  2. ZYPREXA [Suspect]
     Active Substance: OLANZAPINE
     Dosage: 0.5 DF, DAILY
     Route: 048
     Dates: end: 2017
  3. ZYPREXA [Suspect]
     Active Substance: OLANZAPINE
     Dosage: 0.5 DF, PRN
     Route: 048

REACTIONS (6)
  - Apathy [Unknown]
  - Faecal volume increased [Unknown]
  - Somnolence [Unknown]
  - Blood creatinine decreased [Unknown]
  - Abnormal faeces [Unknown]
  - Renal impairment [Unknown]
